FAERS Safety Report 8984255 (Version 1)
Quarter: 2012Q4

REPORT INFORMATION
  Report Type: Spontaneous
  Country: GB (occurrence: None)
  Receive Date: 20121217
  Receipt Date: 20121217
  Transmission Date: 20130627
  Serious: Yes (Hospitalization)
  Sender: FDA-Public Use
  Company Number: 2012HINREG0093

PATIENT
  Age: 54 Year

DRUGS (12)
  1. LEVETIRACETAM [Suspect]
     Indication: EPILEPSY
     Route: 048
     Dates: start: 20121028, end: 20121029
  2. CIPROFLOXACIN (CIPROFLOXACIN) [Suspect]
     Dosage: UNK, Oral
     Dates: start: 20121027, end: 20121028
  3. NITROFURANTOIN [Suspect]
     Indication: DRUG USE FOR UNKNOWN INDICATION
     Route: 048
     Dates: start: 20121028, end: 20121029
  4. TRIMETHOPRIM [Suspect]
     Indication: DRUG USE FOR UNKNOWN INDICATION
     Route: 048
     Dates: start: 20121029, end: 20121030
  5. CHLORPHENAMINE [Concomitant]
  6. COLESTYRAMINE [Concomitant]
  7. DOMPERIDONE (DOMPERIDONE) [Concomitant]
  8. LOPERIDONE (LOPERIDONE) [Concomitant]
  9. METROCLOPRAMIDE (METROPRAMIDE) [Concomitant]
  10. OMEPRAZOLE (OMEPRAZOLE) [Concomitant]
  11. PARACETAMOL (PARACETAMOL) [Concomitant]
  12. TOPIRAMATE (TOPIRAMATE) [Concomitant]

REACTIONS (3)
  - Drug reaction with eosinophilia and systemic symptoms [None]
  - Inflammatory marker increased [None]
  - White blood cell count increased [None]
